FAERS Safety Report 6119477-9 (Version None)
Quarter: 2009Q1

REPORT INFORMATION
  Report Type: 
  Country: None (occurrence: None)
  Receive Date: 20090316
  Receipt Date: 20090306
  Transmission Date: 20090719
  Serious: Yes (Death)
  Sender: FDA-Public Use
  Company Number: A0773155A

PATIENT
  Age: 72 Year
  Sex: Male
  Weight: 107.3 kg

DRUGS (8)
  1. AVANDIA [Suspect]
     Indication: DIABETES MELLITUS
     Dosage: 8MG TWICE PER DAY
     Route: 048
     Dates: start: 20050101, end: 20070101
  2. ATENOLOL [Concomitant]
  3. LASIX [Concomitant]
     Dates: start: 20050101
  4. LIPITOR [Concomitant]
     Dates: start: 20040101
  5. AMITRIPTYLINE HCL [Concomitant]
  6. ATENOLOL [Concomitant]
  7. GLIPIZIDE [Concomitant]
  8. FERROUS SULFATE TAB [Concomitant]

REACTIONS (5)
  - AORTIC STENOSIS [None]
  - CARDIAC FAILURE CONGESTIVE [None]
  - CARDIAC VALVE DISEASE [None]
  - MYOCARDIAL INFARCTION [None]
  - SUDDEN DEATH [None]
